FAERS Safety Report 14289122 (Version 1)
Quarter: 2017Q4

REPORT INFORMATION
  Report Type: Spontaneous
  Country: US (occurrence: US)
  Receive Date: 20171215
  Receipt Date: 20171215
  Transmission Date: 20180321
  Serious: No
  Sender: FDA-Public Use
  Company Number: US-PFIZER INC-2017499398

PATIENT
  Age: 36 Year
  Sex: Female
  Weight: 53.52 kg

DRUGS (1)
  1. ALDACTONE [Suspect]
     Active Substance: SPIRONOLACTONE
     Indication: ACNE
     Dosage: 50 MG, 2X/DAY
     Route: 048

REACTIONS (4)
  - Suspected counterfeit product [Unknown]
  - Palpitations [Unknown]
  - Chest pain [Unknown]
  - Product use in unapproved indication [Unknown]
